FAERS Safety Report 15475644 (Version 1)
Quarter: 2018Q4

REPORT INFORMATION
  Report Type: Spontaneous
  Country: US (occurrence: US)
  Receive Date: 20181008
  Receipt Date: 20181008
  Transmission Date: 20190205
  Serious: No
  Sender: FDA-Public Use
  Company Number: US-PRINSTON PHARMACEUTICAL INC.-2018PRN01144

PATIENT
  Age: 67 Year
  Sex: Female
  Weight: 72.56 kg

DRUGS (2)
  1. ATENOLOL. [Concomitant]
     Active Substance: ATENOLOL
  2. IRBESARTAN. [Suspect]
     Active Substance: IRBESARTAN
     Indication: HYPERTENSION
     Dosage: 75 MG, 1X/DAY
     Route: 048
     Dates: start: 20180824, end: 20180826

REACTIONS (2)
  - Tongue discomfort [Not Recovered/Not Resolved]
  - Oral pain [Not Recovered/Not Resolved]

NARRATIVE: CASE EVENT DATE: 20180824
